FAERS Safety Report 7426118-7 (Version None)
Quarter: 2011Q2

REPORT INFORMATION
  Report Type: 
  Country: None (occurrence: None)
  Receive Date: 20110420
  Receipt Date: 20110408
  Transmission Date: 20111010
  Serious: Yes (Hospitalization, Other)
  Sender: FDA-Public Use
  Company Number: PHBS2004JP16466

PATIENT
  Age: 44 Year
  Sex: Male

DRUGS (6)
  1. SOLANAX [Concomitant]
     Dosage: UNK
     Route: 048
     Dates: start: 20020820, end: 20040718
  2. LANDSEN [Concomitant]
     Dosage: UNK
     Route: 048
     Dates: start: 20020820, end: 20040718
  3. CARBAMAZEPINE [Suspect]
     Dosage: UNK
     Route: 048
     Dates: start: 20040616, end: 20040718
  4. CONTOMIN [Concomitant]
     Dosage: UNK
     Route: 048
     Dates: end: 20040718
  5. PAXIL [Concomitant]
     Dosage: UNK
     Route: 048
     Dates: start: 20020820, end: 20040718
  6. DEPAS [Concomitant]
     Dosage: UNK
     Route: 048
     Dates: start: 20020820, end: 20040718

REACTIONS (29)
  - FACE OEDEMA [None]
  - PYREXIA [None]
  - PRURITUS [None]
  - LEUKOCYTOSIS [None]
  - HEPATITIS [None]
  - DYSPNOEA [None]
  - GENERALISED ERYTHEMA [None]
  - RASH GENERALISED [None]
  - LYMPHADENOPATHY [None]
  - RASH [None]
  - PAPULE [None]
  - ALANINE AMINOTRANSFERASE INCREASED [None]
  - EOSINOPHILIA [None]
  - LOCALISED OEDEMA [None]
  - HEPATIC FUNCTION ABNORMAL [None]
  - BLOOD IMMUNOGLOBULIN G DECREASED [None]
  - LYMPHOCYTE STIMULATION TEST POSITIVE [None]
  - SCAB [None]
  - MALAISE [None]
  - DRUG RASH WITH EOSINOPHILIA AND SYSTEMIC SYMPTOMS [None]
  - EAR CANAL ERYTHEMA [None]
  - BLOOD GROWTH HORMONE ABNORMAL [None]
  - LYMPHOCYTE MORPHOLOGY ABNORMAL [None]
  - ORAL MUCOSAL ERYTHEMA [None]
  - RASH MACULO-PAPULAR [None]
  - HUMAN HERPESVIRUS 6 INFECTION [None]
  - OROPHARYNGEAL BLISTERING [None]
  - LARYNGEAL OEDEMA [None]
  - BLOOD IMMUNOGLOBULIN M DECREASED [None]
